FAERS Safety Report 17593449 (Version 1)
Quarter: 2020Q1

REPORT INFORMATION
  Report Type: Spontaneous
  Country: US (occurrence: US)
  Receive Date: 20200327
  Receipt Date: 20200327
  Transmission Date: 20200409
  Serious: No
  Sender: FDA-Public Use
  Company Number: US-TOPROL ACQUISITION LLC-2019-TOP-001558

PATIENT
  Age: 65 Year
  Sex: Female

DRUGS (3)
  1. TOPROL XL [Suspect]
     Active Substance: METOPROLOL SUCCINATE
     Indication: HYPERTENSION
     Dosage: 100 MG, BID
  2. MONOPRIL [Concomitant]
     Active Substance: FOSINOPRIL SODIUM
  3. TOLVAPTAN [Concomitant]
     Active Substance: TOLVAPTAN

REACTIONS (3)
  - Inappropriate schedule of product administration [Unknown]
  - Drug ineffective [Unknown]
  - Hypertensive crisis [Unknown]

NARRATIVE: CASE EVENT DATE: 20191208
